FAERS Safety Report 4686886-4 (Version None)
Quarter: 2005Q2

REPORT INFORMATION
  Report Type: 
  Country: None (occurrence: None)
  Receive Date: 20050608
  Receipt Date: 20050524
  Transmission Date: 20051028
  Serious: Yes (Other)
  Sender: FDA-Public Use
  Company Number: 2005082414

PATIENT
  Age: 53 Year
  Sex: Male
  Weight: 82 kg

DRUGS (3)
  1. VFEND [Suspect]
     Indication: ASPERGILLOSIS
     Dosage: 800 MG (400 MG, BID) ORAL
     Route: 048
     Dates: start: 20050501
  2. OXYCONTIN [Concomitant]
  3. MOGADON (NITRAZEPAM) [Concomitant]

REACTIONS (5)
  - DELIRIUM [None]
  - DISORIENTATION [None]
  - DYSSTASIA [None]
  - HALLUCINATION [None]
  - VOMITING [None]
